FAERS Safety Report 16913344 (Version 2)
Quarter: 2019Q4

REPORT INFORMATION
  Report Type: Spontaneous
  Country: GB (occurrence: GB)
  Receive Date: 20191014
  Receipt Date: 20191221
  Transmission Date: 20200122
  Serious: Yes (Other)
  Sender: FDA-Public Use
  Company Number: GB-ACCORD-157208

PATIENT
  Age: 7 Year
  Sex: Male
  Weight: 31 kg

DRUGS (3)
  1. MONTELUKAST [Suspect]
     Active Substance: MONTELUKAST SODIUM
     Indication: ASTHMA
     Dosage: 5 MG
     Route: 048
     Dates: start: 201706, end: 20190913
  2. SALBUTAMOL/SALBUTAMOL SULFATE [Concomitant]
     Active Substance: ALBUTEROL
  3. CLENIL MODULITE [Concomitant]
     Active Substance: BECLOMETHASONE DIPROPIONATE

REACTIONS (2)
  - Anger [Recovering/Resolving]
  - Nightmare [Not Recovered/Not Resolved]

NARRATIVE: CASE EVENT DATE: 20190101
